FAERS Safety Report 23687753 (Version 1)
Quarter: 2024Q1

REPORT INFORMATION
  Report Type: Spontaneous
  Country: US (occurrence: US)
  Receive Date: 20240329
  Receipt Date: 20240329
  Transmission Date: 20240410
  Serious: No
  Sender: FDA-Public Use
  Company Number: US-GSK-US2024036878

PATIENT
  Sex: Female

DRUGS (2)
  1. MEPRON [Suspect]
     Active Substance: ATOVAQUONE
     Indication: Respiratory rate decreased
     Dosage: UNK, 210 ML
     Dates: start: 20231110
  2. MEPRON [Suspect]
     Active Substance: ATOVAQUONE
     Indication: Lyme disease

REACTIONS (2)
  - Product use in unapproved indication [Unknown]
  - Product prescribing issue [Unknown]
